FAERS Safety Report 25096357 (Version 3)
Quarter: 2025Q4

REPORT INFORMATION
  Report Type: Spontaneous
  Country: CA (occurrence: CA)
  Receive Date: 20250319
  Receipt Date: 20251001
  Transmission Date: 20260118
  Serious: Yes (Other)
  Sender: PFIZER
  Company Number: CA-PFIZER INC-202500059567

PATIENT
  Age: 60 Year
  Sex: Male

DRUGS (10)
  1. RUXIENCE [Suspect]
     Active Substance: RITUXIMAB-PVVR
     Indication: Rheumatoid arthritis
     Dosage: 1000 MG DAY 1 AND DAY 15
     Route: 042
     Dates: start: 20241002, end: 20241016
  2. RUXIENCE [Suspect]
     Active Substance: RITUXIMAB-PVVR
     Dosage: 1000 MG, DAY 1 AND DAY 15
     Route: 042
     Dates: start: 20250415, end: 20250429
  3. RUXIENCE [Suspect]
     Active Substance: RITUXIMAB-PVVR
     Dosage: 1000 MG, IV(INTRAVENOUSLY) X 2, 2 WEEKS APART EVERY 6 MONTHS
     Route: 042
     Dates: start: 20250429
  4. CELECOXIB [Concomitant]
     Active Substance: CELECOXIB
     Dosage: 200 MG, DAILY AS NEEDED
     Route: 048
  5. CICLESONIDE [Concomitant]
     Active Substance: CICLESONIDE
     Dosage: 50 UG, DAILY, TWO SPRAYS TO EACH NOSTRIL
     Route: 045
  6. CETIRIZINE HYDROCHLORIDE [Concomitant]
     Active Substance: CETIRIZINE HYDROCHLORIDE
     Dosage: 10 MG, DAILY
     Route: 048
  7. FOLIC ACID [Concomitant]
     Active Substance: FOLIC ACID
     Dosage: 5 MG, 3 TIMES A WEEK
     Route: 048
  8. METHOTREXATE SODIUM [Concomitant]
     Active Substance: METHOTREXATE SODIUM
     Dosage: 15 MG WEEKLY (2.5MG TABLET)
     Route: 048
  9. MOMETASONE [Concomitant]
     Active Substance: MOMETASONE
     Dosage: 0.1 %, TWICE DAILY
     Route: 061
  10. BREA [Concomitant]
     Dosage: UNK, INHALER

REACTIONS (10)
  - Eyelid ptosis [Unknown]
  - Upper respiratory tract infection [Unknown]
  - Heart rate increased [Unknown]
  - Parotid gland enlargement [Unknown]
  - Alanine aminotransferase increased [Unknown]
  - Complement factor C4 increased [Unknown]
  - Rheumatoid factor increased [Unknown]
  - Dysuria [Unknown]
  - Condition aggravated [Unknown]
  - Sensation of foreign body [Unknown]

NARRATIVE: CASE EVENT DATE: 20240101
